FAERS Safety Report 11237116 (Version 1)
Quarter: 2015Q3

REPORT INFORMATION
  Report Type: Report from Study
  Country: US (occurrence: US)
  Receive Date: 20150703
  Receipt Date: 20150703
  Transmission Date: 20151125
  Serious: Yes (Other)
  Sender: FDA-Public Use
  Company Number: PHEH2015US003644

PATIENT
  Age: 45 Year
  Sex: Male
  Weight: 90.7 kg

DRUGS (3)
  1. TYSABRI [Concomitant]
     Active Substance: NATALIZUMAB
     Indication: RELAPSING-REMITTING MULTIPLE SCLEROSIS
     Dosage: UNK
     Route: 042
     Dates: start: 2009, end: 2014
  2. GILENYA [Suspect]
     Active Substance: FINGOLIMOD HYDROCHLORIDE
     Indication: RELAPSING-REMITTING MULTIPLE SCLEROSIS
     Dosage: 0.5 MG, QD
     Route: 048
     Dates: start: 20150216
  3. GILENYA [Suspect]
     Active Substance: FINGOLIMOD HYDROCHLORIDE
     Dosage: UNK, QD
     Route: 048
     Dates: start: 20150302, end: 20150402

REACTIONS (8)
  - Headache [Recovering/Resolving]
  - Vomiting [Recovering/Resolving]
  - Bradycardia [Recovering/Resolving]
  - Dizziness [Recovering/Resolving]
  - Vertigo [Unknown]
  - Nausea [Recovering/Resolving]
  - Fatigue [Unknown]
  - Abdominal discomfort [Recovering/Resolving]

NARRATIVE: CASE EVENT DATE: 20150216
